FAERS Safety Report 17360263 (Version 2)
Quarter: 2021Q1

REPORT INFORMATION
  Report Type: Report from Study
  Country: CA (occurrence: CA)
  Receive Date: 20200203
  Receipt Date: 20210107
  Transmission Date: 20210419
  Serious: Yes (Other)
  Sender: FDA-Public Use
  Company Number: CA-GLAXOSMITHKLINE-CA2020AMR003664

PATIENT
  Sex: Female

DRUGS (2)
  1. MEPOLIZUMAB [Suspect]
     Active Substance: MEPOLIZUMAB
     Indication: ASTHMA
     Dosage: 100 MG, Z,(MONTHLY)
     Route: 042
     Dates: start: 20180323
  2. MEPOLIZUMAB [Suspect]
     Active Substance: MEPOLIZUMAB
     Dosage: 100 MG, Z, MONTHLY
     Route: 042

REACTIONS (4)
  - Asthma [Unknown]
  - Sarcoidosis [Unknown]
  - Dyspnoea [Unknown]
  - Sleep disorder due to a general medical condition [Unknown]
